FAERS Safety Report 5681091-7 (Version None)
Quarter: 2008Q1

REPORT INFORMATION
  Report Type: 
  Country: None (occurrence: None)
  Receive Date: 20080325
  Receipt Date: 20080314
  Transmission Date: 20080703
  Serious: Yes (Hospitalization, Other)
  Sender: FDA-Public Use
  Company Number: CHNY2008FR01221

PATIENT
  Age: 19 Year
  Sex: Female

DRUGS (5)
  1. IBUPROFEN [Suspect]
     Indication: HEADACHE
  2. KETOROLAC (NGX)(KETOROLAC) UNKNOWN [Suspect]
     Indication: HEADACHE
  3. METOCLOPRAMIDE [Suspect]
     Indication: HEADACHE
  4. CEFTRIAXONE [Suspect]
     Dosage: INTRAVENOUS
     Route: 042
  5. CIPROFLOXACIN [Suspect]
     Indication: URINARY TRACT INFECTION

REACTIONS (11)
  - BILIARY DILATATION [None]
  - CHOLECYSTITIS [None]
  - CHOLESTASIS [None]
  - CONJUNCTIVAL HYPERAEMIA [None]
  - HEADACHE [None]
  - HEPATITIS CHOLESTATIC [None]
  - NO THERAPEUTIC RESPONSE [None]
  - PAIN [None]
  - SEPSIS [None]
  - STEVENS-JOHNSON SYNDROME [None]
  - URINARY TRACT INFECTION [None]
